FAERS Safety Report 5456033-X (Version None)
Quarter: 2007Q3

REPORT INFORMATION
  Report Type: 
  Country: None (occurrence: None)
  Receive Date: 20070918
  Receipt Date: 20070430
  Transmission Date: 20080115
  Serious: Yes (Other)
  Sender: FDA-Public Use
  Company Number: US-ASTRAZENECA-2006UW24045

PATIENT
  Weight: 54.5 kg

DRUGS (3)
  1. SEROQUEL [Suspect]
     Indication: DEPRESSION
     Route: 048
     Dates: start: 19990101, end: 20030101
  2. ABILIFY [Concomitant]
  3. ZYPREXA [Concomitant]

REACTIONS (1)
  - PANCREATITIS [None]
